FAERS Safety Report 7397134-9 (Version None)
Quarter: 2011Q2

REPORT INFORMATION
  Report Type: 
  Country: None (occurrence: None)
  Receive Date: 20110406
  Receipt Date: 20110331
  Transmission Date: 20111010
  Serious: Yes (Death)
  Sender: FDA-Public Use
  Company Number: B0696545A

PATIENT
  Sex: Male
  Weight: 40 kg

DRUGS (38)
  1. MAGLAX [Concomitant]
     Dosage: 660MG PER DAY
     Route: 048
     Dates: start: 20071012, end: 20071125
  2. SEROQUEL [Concomitant]
     Dosage: .5MG PER DAY
     Route: 048
     Dates: start: 20071106, end: 20071122
  3. KYTRIL [Concomitant]
     Dosage: 3ML PER DAY
     Dates: start: 20071012, end: 20071017
  4. MINOMYCIN [Concomitant]
     Dosage: 2IUAX PER DAY
     Route: 042
     Dates: start: 20071026, end: 20071112
  5. CRAVIT [Concomitant]
     Dosage: 300MG PER DAY
     Route: 048
     Dates: start: 20071011, end: 20071015
  6. FUNGIZONE [Concomitant]
     Dosage: 60ML PER DAY
     Route: 002
     Dates: start: 20071005, end: 20071122
  7. DIFLUCAN [Concomitant]
     Dosage: 200MG PER DAY
     Route: 048
     Dates: start: 20071011, end: 20071115
  8. DEPAS [Concomitant]
     Dosage: .5MG PER DAY
     Route: 048
     Dates: start: 20071013, end: 20071101
  9. HACHIAZULE [Concomitant]
     Dosage: 6G PER DAY
     Route: 002
     Dates: start: 20071021, end: 20071128
  10. ALKERAN [Suspect]
     Indication: CORD BLOOD TRANSPLANT THERAPY
     Dosage: 80MGM2 PER DAY
     Route: 042
     Dates: start: 20071017, end: 20071017
  11. GRAN [Concomitant]
     Dosage: 450MG PER DAY
     Dates: start: 20071020, end: 20071201
  12. ZOVIRAX [Concomitant]
     Dosage: 1000MG PER DAY
     Route: 048
     Dates: start: 20071011, end: 20071120
  13. MEXITIL [Concomitant]
     Dosage: 150MG PER DAY
     Route: 048
     Dates: start: 20071012, end: 20071104
  14. KLARICID [Concomitant]
     Dosage: 200MG PER DAY
     Route: 048
     Dates: start: 20071012, end: 20071025
  15. DUROTEP [Concomitant]
     Route: 062
     Dates: start: 20071018, end: 20071123
  16. ULCERLMIN [Concomitant]
     Dosage: 3G PER DAY
     Route: 048
     Dates: start: 20071022, end: 20071126
  17. WYPAX [Concomitant]
     Dosage: .5MG PER DAY
     Route: 048
     Dates: start: 20071025, end: 20071105
  18. FOY [Concomitant]
     Dosage: 6IUAX PER DAY
     Route: 042
     Dates: start: 20071022, end: 20071031
  19. XYLOCAINE [Concomitant]
     Dosage: 50ML PER DAY
     Dates: start: 20071104, end: 20071106
  20. FUNGUARD [Concomitant]
     Dosage: 3IUAX PER DAY
     Route: 042
     Dates: start: 20071019, end: 20071031
  21. ORGARAN [Concomitant]
     Dosage: 2IUAX PER DAY
     Route: 042
     Dates: start: 20071012, end: 20071118
  22. FOY [Concomitant]
     Dosage: 2IUAX PER DAY
     Route: 042
     Dates: start: 20071018, end: 20071107
  23. MEROPEN [Concomitant]
     Dosage: 4IUAX PER DAY
     Route: 042
     Dates: start: 20071018, end: 20071026
  24. SULPERAZON [Concomitant]
     Dosage: 4IUAX PER DAY
     Route: 042
     Dates: start: 20071026, end: 20071101
  25. BIOFERMIN R [Concomitant]
     Dosage: 3IUAX PER DAY
     Route: 048
     Dates: start: 20071011, end: 20071120
  26. SERENACE [Concomitant]
     Dosage: 1.5MG PER DAY
     Route: 048
     Dates: start: 20071012, end: 20071108
  27. MORPHINE HYDROCHLORIDE [Concomitant]
     Dosage: 5MG PER DAY
     Route: 048
     Dates: start: 20071102, end: 20071115
  28. FIRSTCIN [Concomitant]
     Dosage: 4IUAX PER DAY
     Route: 042
     Dates: start: 20071012, end: 20071114
  29. TOBRACIN [Concomitant]
     Dosage: 2IUAX PER DAY
     Dates: start: 20071025, end: 20071026
  30. FLUDARA [Suspect]
     Indication: CORD BLOOD TRANSPLANT THERAPY
     Dosage: 25MGM2 PER DAY
     Route: 042
     Dates: start: 20071012, end: 20071016
  31. CYCLOSPORINE [Concomitant]
     Indication: IMMUNOSUPPRESSION
     Dosage: 130MG PER DAY
     Route: 065
     Dates: start: 20071018, end: 20071201
  32. OMEPRAL [Concomitant]
     Dosage: 20MG PER DAY
     Route: 048
     Dates: start: 20071005, end: 20071120
  33. URSO 250 [Concomitant]
     Dosage: 600MG PER DAY
     Route: 048
     Dates: start: 20071011, end: 20071120
  34. NEO-MINOPHAGEN-C [Concomitant]
     Dosage: 4IUAX PER DAY
     Route: 042
     Dates: start: 20071012, end: 20071201
  35. MEYLON [Concomitant]
     Dosage: 80ML PER DAY
     Route: 042
     Dates: start: 20071017, end: 20071017
  36. ADONA (AC-17) [Concomitant]
     Dosage: 20ML PER DAY
     Dates: start: 20071017, end: 20071020
  37. ATARAX [Concomitant]
     Dosage: 1ML PER DAY
     Dates: start: 20071018, end: 20071102
  38. AMBISOME [Concomitant]
     Dosage: .6IUAX PER DAY
     Route: 042
     Dates: start: 20071109, end: 20071201

REACTIONS (9)
  - ALANINE AMINOTRANSFERASE INCREASED [None]
  - C-REACTIVE PROTEIN INCREASED [None]
  - BLOOD ALKALINE PHOSPHATASE INCREASED [None]
  - FUNGAEMIA [None]
  - ASPARTATE AMINOTRANSFERASE INCREASED [None]
  - BLOOD LACTATE DEHYDROGENASE [None]
  - GAMMA-GLUTAMYLTRANSFERASE [None]
  - SEPSIS [None]
  - PSEUDOMONAS INFECTION [None]
